FAERS Safety Report 26127168 (Version 1)
Quarter: 2025Q4

REPORT INFORMATION
  Report Type: Report from Study
  Country: US (occurrence: US)
  Receive Date: 20251205
  Receipt Date: 20251205
  Transmission Date: 20260118
  Serious: Yes (Other)
  Sender: ABBVIE
  Company Number: US-TAKEDA-2025TUS108099

PATIENT
  Sex: Male

DRUGS (2)
  1. LEUPROLIDE ACETATE [Suspect]
     Active Substance: LEUPROLIDE ACETATE
     Indication: Prostate cancer recurrent
     Dosage: UNK
     Route: 065
  2. ENZALUTAMIDE [Suspect]
     Active Substance: ENZALUTAMIDE
     Indication: Prostate cancer recurrent
     Dosage: UNK
     Route: 065

REACTIONS (20)
  - Cardiovascular disorder [Unknown]
  - Fracture [Unknown]
  - Liver disorder [Unknown]
  - Second primary malignancy [Unknown]
  - Musculoskeletal disorder [Unknown]
  - Seizure [Unknown]
  - Renal disorder [Unknown]
  - Posterior reversible encephalopathy syndrome [Unknown]
  - Neutrophil count decreased [Unknown]
  - Severe cutaneous adverse reaction [Unknown]
  - Fatigue [Unknown]
  - Rash [Unknown]
  - Thrombocytopenia [Unknown]
  - Loss of consciousness [Unknown]
  - Fall [Unknown]
  - Angioedema [Unknown]
  - Cognitive disorder [Unknown]
  - Hypertension [Unknown]
  - Myocardial ischaemia [Unknown]
  - Memory impairment [Unknown]
